FAERS Safety Report 10196401 (Version 1)
Quarter: 2014Q2

REPORT INFORMATION
  Report Type: Spontaneous
  Country: NL (occurrence: NL)
  Receive Date: 20140527
  Receipt Date: 20140527
  Transmission Date: 20141212
  Serious: Yes (Life-Threatening, Hospitalization)
  Sender: FDA-Public Use
  Company Number: NL-JNJFOC-20140512091

PATIENT
  Age: 31 Year
  Sex: Female
  Weight: 70 kg

DRUGS (4)
  1. XEPLION [Suspect]
     Indication: AUTISM
     Route: 030
     Dates: start: 2014
  2. WELLBUTRIN [Concomitant]
     Route: 048
     Dates: start: 2010
  3. PROMETHAZINE [Concomitant]
     Route: 048
     Dates: start: 2010
  4. PIPAMPERON [Concomitant]
     Route: 048
     Dates: start: 2010

REACTIONS (4)
  - Water intoxication [Recovered/Resolved]
  - Coma [Unknown]
  - Convulsion [Unknown]
  - Off label use [Unknown]
